FAERS Safety Report 12498268 (Version 1)
Quarter: 2016Q2

REPORT INFORMATION
  Report Type: Report from Study
  Country: KR (occurrence: KR)
  Receive Date: 20160627
  Receipt Date: 20160627
  Transmission Date: 20160815
  Serious: Yes (Hospitalization)
  Sender: FDA-Public Use
  Company Number: KR-ROCHE-1782945

PATIENT
  Sex: Female

DRUGS (12)
  1. STILLEN [Concomitant]
     Indication: PROPHYLAXIS
     Route: 065
     Dates: start: 20130305
  2. UCERAX [Concomitant]
     Indication: PROPHYLAXIS
     Route: 065
     Dates: start: 20130305
  3. LEFLUNOMIDE. [Concomitant]
     Active Substance: LEFLUNOMIDE
  4. PENIRAMIN [Concomitant]
     Indication: PROPHYLAXIS
     Route: 065
     Dates: start: 20130411
  5. TOCILIZUMAB [Suspect]
     Active Substance: TOCILIZUMAB
     Indication: RHEUMATOID ARTHRITIS
     Route: 042
     Dates: start: 20130703
  6. METHOTREXATE [Concomitant]
     Active Substance: METHOTREXATE
     Indication: RHEUMATOID ARTHRITIS
     Route: 065
     Dates: start: 20130305
  7. CETAMADOL [Concomitant]
     Indication: PROPHYLAXIS
     Dosage: UNCERTAINTY
     Route: 065
     Dates: start: 20130305
  8. FEROBA-U [Concomitant]
     Indication: PROPHYLAXIS
     Dosage: UNCERTAINTY
     Route: 065
     Dates: start: 20130305
  9. CELEBREX [Concomitant]
     Active Substance: CELECOXIB
     Indication: PROPHYLAXIS
     Route: 065
     Dates: start: 20130305
  10. SOLONDO [Concomitant]
     Active Substance: PREDNISOLONE
     Indication: PROPHYLAXIS
     Route: 065
     Dates: start: 20130305
  11. FOLIC ACID. [Concomitant]
     Active Substance: FOLIC ACID
     Indication: PROPHYLAXIS
     Route: 065
     Dates: start: 20130314
  12. CIPOL-N [Concomitant]
     Indication: PROPHYLAXIS
     Route: 065
     Dates: start: 20130306

REACTIONS (2)
  - Joint swelling [Recovered/Resolved]
  - Arthralgia [Recovered/Resolved]
